FAERS Safety Report 8469273 (Version 4)
Quarter: 2013Q2

REPORT INFORMATION
  Report Type: Spontaneous
  Country: US (occurrence: US)
  Receive Date: 20120321
  Receipt Date: 20130617
  Transmission Date: 20140414
  Serious: Yes (Hospitalization, Disabling, Other)
  Sender: FDA-Public Use
  Company Number: US-ASTRAZENECA-2011SE41582

PATIENT
  Age: 59 Year
  Sex: Female
  Weight: 117.9 kg

DRUGS (39)
  1. NEXIUM [Suspect]
     Indication: GASTROOESOPHAGEAL REFLUX DISEASE
     Route: 048
     Dates: start: 2004, end: 2007
  2. NEXIUM [Suspect]
     Indication: NAUSEA
     Route: 048
     Dates: start: 2004, end: 2007
  3. NEXIUM [Suspect]
     Indication: VOMITING
     Route: 048
     Dates: start: 2004, end: 2007
  4. NEXIUM [Suspect]
     Indication: GASTROOESOPHAGEAL REFLUX DISEASE
     Dosage: TWO PER DAY FOR 2 YEARS AND ONCE PER DAY THEREAFTER
     Route: 048
     Dates: start: 2005
  5. NEXIUM [Suspect]
     Indication: NAUSEA
     Dosage: TWO PER DAY FOR 2 YEARS AND ONCE PER DAY THEREAFTER
     Route: 048
     Dates: start: 2005
  6. NEXIUM [Suspect]
     Indication: VOMITING
     Dosage: TWO PER DAY FOR 2 YEARS AND ONCE PER DAY THEREAFTER
     Route: 048
     Dates: start: 2005
  7. NEXIUM [Suspect]
     Indication: GASTROOESOPHAGEAL REFLUX DISEASE
     Dosage: DAILY
     Route: 048
     Dates: start: 2006
  8. NEXIUM [Suspect]
     Indication: NAUSEA
     Dosage: DAILY
     Route: 048
     Dates: start: 2006
  9. NEXIUM [Suspect]
     Indication: VOMITING
     Dosage: DAILY
     Route: 048
     Dates: start: 2006
  10. NEXIUM [Suspect]
     Indication: GASTROOESOPHAGEAL REFLUX DISEASE
     Route: 048
  11. NEXIUM [Suspect]
     Indication: NAUSEA
     Route: 048
  12. NEXIUM [Suspect]
     Indication: VOMITING
     Route: 048
  13. NEXIUM [Suspect]
     Indication: GASTROOESOPHAGEAL REFLUX DISEASE
     Route: 048
  14. NEXIUM [Suspect]
     Indication: NAUSEA
     Route: 048
  15. NEXIUM [Suspect]
     Indication: VOMITING
     Route: 048
  16. NEXIUM [Suspect]
     Indication: GASTROOESOPHAGEAL REFLUX DISEASE
     Route: 048
     Dates: start: 2007
  17. NEXIUM [Suspect]
     Indication: NAUSEA
     Route: 048
     Dates: start: 2007
  18. NEXIUM [Suspect]
     Indication: VOMITING
     Route: 048
     Dates: start: 2007
  19. PRILOSEC [Concomitant]
     Dosage: ONCE DAILY
     Route: 048
     Dates: start: 2005, end: 2005
  20. TAGAMET [Concomitant]
     Dosage: ONCE DAILY
     Dates: start: 2004, end: 2004
  21. TUMS [Concomitant]
  22. ROLAIDS [Concomitant]
  23. PEPTO BISMOL [Concomitant]
  24. LORTAB [Concomitant]
     Indication: PAIN IN EXTREMITY
     Dosage: 10.5 MG 1 TABLET 4 DAY
  25. WELLBURTIN [Concomitant]
     Indication: BIPOLAR DISORDER
  26. WELLBURTIN [Concomitant]
     Indication: DEPRESSION
  27. RISPIDAL [Concomitant]
     Indication: BIPOLAR DISORDER
  28. ARTHOTEC [Concomitant]
     Indication: ARTHRITIS
  29. DAELTRIL [Concomitant]
     Indication: BLADDER DISORDER
  30. CITALOPRAM [Concomitant]
  31. XANAX [Concomitant]
  32. SEROQUEL [Concomitant]
     Indication: SOMNOLENCE
  33. GEODON [Concomitant]
     Indication: WEIGHT INCREASED
  34. DARVOCET [Concomitant]
     Dosage: 50 MG 2-3 DAILY AS NEEDED
  35. MORTIN [Concomitant]
     Dosage: 800 MG TWICE DAILY IF NEDDED
  36. NAPROXEN [Concomitant]
     Indication: INFLAMMATION
     Dosage: 500 MG 1-3 DAILY AS NEEDED
  37. CELEXA [Concomitant]
     Indication: DEPRESSION
  38. CELEXA [Concomitant]
     Indication: BIPOLAR DISORDER
  39. HYDROCODONE [Concomitant]
     Indication: BACK PAIN

REACTIONS (19)
  - Neoplasm malignant [Unknown]
  - Cholelithiasis [Unknown]
  - Arthropathy [Unknown]
  - Joint injury [Unknown]
  - Femur fracture [Unknown]
  - Bipolar disorder [Unknown]
  - Back pain [Unknown]
  - Limb injury [Unknown]
  - Depression [Unknown]
  - Osteoporosis [Unknown]
  - Foot fracture [Unknown]
  - Pain in extremity [Unknown]
  - Lower limb fracture [Unknown]
  - Gastrooesophageal reflux disease [Unknown]
  - Incorrect dose administered [Unknown]
  - Bone disorder [Unknown]
  - Fracture [Unknown]
  - Arthritis [Unknown]
  - Glucose tolerance impaired [Unknown]
